FAERS Safety Report 8119290-7 (Version None)
Quarter: 2012Q1

REPORT INFORMATION
  Report Type: 
  Country: None (occurrence: None)
  Receive Date: 20120207
  Receipt Date: 20120125
  Transmission Date: 20120608
  Serious: Yes (Other)
  Sender: FDA-Public Use
  Company Number: US-ELI_LILLY_AND_COMPANY-US201201008502

PATIENT
  Age: 65 Year
  Sex: Female

DRUGS (18)
  1. NASONEX [Concomitant]
  2. CIMETIDINE [Concomitant]
  3. OSCAL                              /00751519/ [Concomitant]
  4. VITAMIN D [Concomitant]
  5. CYMBALTA [Suspect]
     Indication: DEPRESSION
     Dosage: 60 MG, QD
     Dates: start: 20050101
  6. ONGLYZA [Concomitant]
  7. PRAVASTATIN [Concomitant]
  8. FENOFIBRATE [Concomitant]
  9. LEVEMIR [Concomitant]
  10. FOSINOPRIL SODIUM [Concomitant]
  11. GLIPIZIDE [Concomitant]
  12. FEXOFENADINE HYDROCHLORIDE [Concomitant]
  13. ASPIRIN [Concomitant]
  14. HYDROCHLOROTHIAZIDE [Concomitant]
  15. MULTI-VITAMINS [Concomitant]
  16. VERAPAMIL [Concomitant]
  17. XANAX                                   /USA/ [Concomitant]
  18. NOVOLOG [Concomitant]

REACTIONS (1)
  - ARRHYTHMIA [None]
